FAERS Safety Report 15210830 (Version 9)
Quarter: 2021Q3

REPORT INFORMATION
  Report Type: Spontaneous
  Country: US (occurrence: US)
  Receive Date: 20180728
  Receipt Date: 20210816
  Transmission Date: 20211014
  Serious: Yes (Other)
  Sender: FDA-Public Use
  Company Number: US-SA-2017SA253007

PATIENT
  Age: 53 Year
  Sex: Male

DRUGS (4)
  1. AUBAGIO [Suspect]
     Active Substance: TERIFLUNOMIDE
     Dosage: 14 MG, QD
     Route: 048
     Dates: start: 20171003
  2. AUBAGIO [Suspect]
     Active Substance: TERIFLUNOMIDE
     Dosage: 14 MG, QD
     Route: 048
     Dates: start: 2019
  3. AUBAGIO [Suspect]
     Active Substance: TERIFLUNOMIDE
     Dosage: 14 MG, QD
     Route: 048
     Dates: start: 20170807, end: 2017
  4. AUBAGIO [Suspect]
     Active Substance: TERIFLUNOMIDE
     Indication: MULTIPLE SCLEROSIS
     Dosage: 14 MG, QD
     Route: 048
     Dates: start: 20170626, end: 2017

REACTIONS (11)
  - Alopecia [Not Recovered/Not Resolved]
  - Cognitive disorder [Unknown]
  - Spinal operation [Unknown]
  - Facial pain [Unknown]
  - Jaw disorder [Unknown]
  - Pain [Unknown]
  - Diplopia [Unknown]
  - Pain in jaw [Not Recovered/Not Resolved]
  - Product dose omission in error [Unknown]
  - Multiple sclerosis [Unknown]
  - Fall [Unknown]

NARRATIVE: CASE EVENT DATE: 201709
